FAERS Safety Report 8929297 (Version 1)
Quarter: 2012Q4

REPORT INFORMATION
  Report Type: Spontaneous
  Country: US (occurrence: None)
  Receive Date: 20121126
  Receipt Date: 20121126
  Transmission Date: 20130627
  Serious: Yes (Disabling)
  Sender: FDA-Public Use
  Company Number: None

PATIENT
  Age: 22 Year
  Sex: Male
  Weight: 54.4 kg

DRUGS (1)
  1. TOPIRAMATE [Suspect]
     Indication: EPILEPSY
     Route: 048
     Dates: start: 20081110, end: 20090113

REACTIONS (1)
  - Product substitution issue [None]
